FAERS Safety Report 17349906 (Version 1)
Quarter: 2020Q1

REPORT INFORMATION
  Report Type: Other
  Country: CN (occurrence: CN)
  Receive Date: 20200130
  Receipt Date: 20200130
  Transmission Date: 20200409
  Serious: Yes (Other)
  Sender: FDA-Public Use
  Company Number: CN-CSPC OUYI PHARMACEUTICAL CO., LTD.-2079585

PATIENT
  Age: 62 Year
  Sex: Female
  Weight: 60 kg

DRUGS (1)
  1. TRAMADOL HYDROCHLORIDE. [Suspect]
     Active Substance: TRAMADOL HYDROCHLORIDE
     Indication: PROCEDURAL PAIN
     Route: 030
     Dates: start: 20191022, end: 20191022

REACTIONS (4)
  - Hypotension [None]
  - Palpitations [None]
  - Pallor [None]
  - Hyperhidrosis [None]

NARRATIVE: CASE EVENT DATE: 20191022
